FAERS Safety Report 5711261-0 (Version None)
Quarter: 2008Q2

REPORT INFORMATION
  Report Type: 
  Country: None (occurrence: None)
  Receive Date: 20080418
  Receipt Date: 20080402
  Transmission Date: 20081010
  Serious: Yes (Other)
  Sender: FDA-Public Use
  Company Number: 08H-163-0314137-00

PATIENT
  Sex: Female

DRUGS (1)
  1. EPHEDRINE SULFATE 50MG/ML INJECTION, USP, 1ML AMPULE (EPHEDRINE SULFAT [Suspect]
     Indication: HYPOTENSION
     Dates: start: 20080201, end: 20080201

REACTIONS (4)
  - ATRIOVENTRICULAR BLOCK SECOND DEGREE [None]
  - BRADYCARDIA [None]
  - HYPOTENSION [None]
  - OXYGEN SATURATION DECREASED [None]
